FAERS Safety Report 8430776-8 (Version None)
Quarter: 2012Q2

REPORT INFORMATION
  Report Type: 
  Country: None (occurrence: None)
  Receive Date: 20120612
  Receipt Date: 20120426
  Transmission Date: 20120825
  Serious: Yes (Hospitalization)
  Sender: FDA-Public Use
  Company Number: NL-MEDIMMUNE-MEDI-0015085

PATIENT
  Age: 368 Day
  Sex: Female
  Weight: 5.8 kg

DRUGS (4)
  1. SYNAGIS [Suspect]
     Route: 030
     Dates: start: 20120227, end: 20120101
  2. SYNAGIS [Suspect]
     Indication: BRONCHOPULMONARY DYSPLASIA
     Route: 030
     Dates: start: 20110914, end: 20120201
  3. FERRIC PYROPHOSPHATE [Concomitant]
  4. RANITIDINE HCL [Concomitant]
     Dosage: 1.3 ML

REACTIONS (2)
  - VOMITING [None]
  - DEHYDRATION [None]
